FAERS Safety Report 17273865 (Version 2)
Quarter: 2020Q1

REPORT INFORMATION
  Report Type: Report from Study
  Country: US (occurrence: US)
  Receive Date: 20200115
  Receipt Date: 20200304
  Transmission Date: 20200409
  Serious: Yes (Other)
  Sender: FDA-Public Use
  Company Number: US-PFIZER INC-2019483573

PATIENT
  Age: 49 Year
  Sex: Female

DRUGS (1)
  1. IBRANCE [Suspect]
     Active Substance: PALBOCICLIB
     Indication: BREAST CANCER FEMALE
     Dosage: 125 MG, CYCLIC (EVERYDAY, CYCLE 21 DAYS ON, 7 OFF.)
     Route: 048
     Dates: start: 20191029

REACTIONS (14)
  - Blood pressure fluctuation [Recovering/Resolving]
  - Weight decreased [Recovering/Resolving]
  - Neuropathy peripheral [Unknown]
  - Somnolence [Unknown]
  - Heart rate irregular [Recovering/Resolving]
  - Arthralgia [Unknown]
  - Fatigue [Unknown]
  - Dizziness [Unknown]
  - Myalgia [Unknown]
  - Gastroenteritis viral [Unknown]
  - White blood cell count decreased [Recovering/Resolving]
  - Joint swelling [Unknown]
  - Vomiting [Unknown]
  - Decreased appetite [Recovering/Resolving]

NARRATIVE: CASE EVENT DATE: 2019
